FAERS Safety Report 4727447-8 (Version None)
Quarter: 2005Q3

REPORT INFORMATION
  Report Type: 
  Country: None (occurrence: None)
  Receive Date: 20050727
  Receipt Date: 20050727
  Transmission Date: 20060218
  Serious: Yes (Hospitalization)
  Sender: FDA-Public Use
  Company Number: None

PATIENT
  Age: 88 Year
  Sex: Female
  Weight: 119.7 kg

DRUGS (15)
  1. WARFARIN [Suspect]
     Indication: DEEP VEIN THROMBOSIS
     Dosage: 2.5 MG PO DAILY [CHRONIC]
     Route: 048
  2. WARFARIN [Suspect]
     Indication: PULMONARY EMBOLISM
     Dosage: 2.5 MG PO DAILY [CHRONIC]
     Route: 048
  3. VITAMIN E [Suspect]
     Dosage: 400 IU BID [CHRONIC]
  4. FOSAMOX [Concomitant]
  5. ASPIRIN [Concomitant]
  6. LIPITOR [Concomitant]
  7. SINEMET [Concomitant]
  8. NEURONTIN [Concomitant]
  9. PREVACID [Concomitant]
  10. LOPRESSOR [Concomitant]
  11. MULTIVIT [Concomitant]
  12. CALCIUM GLUCONATE [Concomitant]
  13. REQUIP [Concomitant]
  14. EYE DROP [Concomitant]
  15. VIT E [Concomitant]

REACTIONS (7)
  - ABDOMINAL PAIN [None]
  - GASTROINTESTINAL HAEMORRHAGE [None]
  - INTERNATIONAL NORMALISED RATIO INCREASED [None]
  - NAUSEA [None]
  - SMALL INTESTINAL OBSTRUCTION [None]
  - VITAMIN K DECREASED [None]
  - VOMITING [None]
